FAERS Safety Report 6087795-9 (Version None)
Quarter: 2009Q1

REPORT INFORMATION
  Report Type: 
  Country: None (occurrence: None)
  Receive Date: 20090223
  Receipt Date: 20090211
  Transmission Date: 20090719
  Serious: Yes (Hospitalization)
  Sender: FDA-Public Use
  Company Number: US-ELI_LILLY_AND_COMPANY-US200902002768

PATIENT
  Sex: Female

DRUGS (7)
  1. CYMBALTA [Suspect]
     Dosage: 30 MG, DAILY (1/D)
     Dates: start: 20090128, end: 20090129
  2. FORTEO [Concomitant]
  3. IRON [Concomitant]
  4. ALBUTEROL [Concomitant]
     Route: 055
  5. METOPROLOL /00376901/ [Concomitant]
  6. SPIRIVA [Concomitant]
  7. BETHANECHOL [Concomitant]

REACTIONS (3)
  - ABNORMAL BEHAVIOUR [None]
  - NAUSEA [None]
  - VOMITING [None]
